FAERS Safety Report 16983413 (Version 1)
Quarter: 2019Q4

REPORT INFORMATION
  Report Type: Spontaneous
  Country: US (occurrence: US)
  Receive Date: 20191030
  Receipt Date: 20191030
  Transmission Date: 20200122
  Serious: Yes (Hospitalization)
  Sender: FDA-Public Use
  Company Number: None

PATIENT
  Age: 55 Year
  Sex: Female

DRUGS (14)
  1. PROMETHAZINE TAB 25 MG [Concomitant]
  2. MUPIROCIN OIN 2 % [Concomitant]
  3. AZELASTINE SPR 0.1% [Concomitant]
  4. NAPROXEN TAB 500 MG [Concomitant]
  5. OLUMIANT [Suspect]
     Active Substance: BARICITINIB
     Indication: RHEUMATOID ARTHRITIS
     Route: 048
     Dates: start: 20191001, end: 20191029
  6. LAMOTRIGINE TAB 150 MG [Concomitant]
  7. ZOLPIDEM TAB 10 MG [Concomitant]
  8. ROSUVASTATIN TAB 5 MG [Concomitant]
  9. ONDANSETRON 4MG TAB ODT [Concomitant]
  10. VIIBRYD TAB 40 MG [Concomitant]
  11. DOXEPIN HCL CAP 25 MG [Concomitant]
  12. ALPRAZOLAM TAB 0.5 MG [Concomitant]
  13. OMEPRAZOLE CAP 20 MG [Concomitant]
  14. ESTRADIOL CRE 0.01% [Concomitant]

REACTIONS (2)
  - Pain [None]
  - Gastrointestinal disorder [None]
